FAERS Safety Report 12909870 (Version 1)
Quarter: 2016Q4

REPORT INFORMATION
  Report Type: Spontaneous
  Country: US (occurrence: US)
  Receive Date: 20161104
  Receipt Date: 20161104
  Transmission Date: 20170207
  Serious: Yes (Other)
  Sender: FDA-Public Use
  Company Number: US-BAYER-2016-207974

PATIENT
  Age: 65 Year
  Sex: Male

DRUGS (2)
  1. RADIUM-223 DICHLORIDE [Suspect]
     Active Substance: RADIUM RA-223 DICHLORIDE
     Indication: PROSTATE CANCER STAGE IV
  2. RADIUM-223 DICHLORIDE [Suspect]
     Active Substance: RADIUM RA-223 DICHLORIDE
     Indication: METASTASES TO BONE

REACTIONS (3)
  - Pancytopenia [None]
  - Fatigue [None]
  - Haemoglobin decreased [None]
